FAERS Safety Report 17566022 (Version 1)
Quarter: 2020Q1

REPORT INFORMATION
  Report Type: Spontaneous
  Country: US (occurrence: US)
  Receive Date: 20200320
  Receipt Date: 20200320
  Transmission Date: 20200409
  Serious: No
  Sender: FDA-Public Use
  Company Number: None

PATIENT
  Age: 75 Year
  Sex: Male
  Weight: 108 kg

DRUGS (11)
  1. PANTOPRAZOLE 40MG [Concomitant]
     Active Substance: PANTOPRAZOLE SODIUM
  2. CALCIUM 500MG [Concomitant]
  3. BUMEX 1MG [Concomitant]
  4. CARVEDILOL 12.5MG [Concomitant]
     Active Substance: CARVEDILOL
  5. DEFERASIROX. [Suspect]
     Active Substance: DEFERASIROX
     Route: 048
  6. ATORVASTATIN 40MG [Concomitant]
     Active Substance: ATORVASTATIN
  7. HYDROCODONE/APAP 7.5/325 [Concomitant]
     Active Substance: ACETAMINOPHEN\HYDROCODONE
  8. ENALAPRIL 2.5MG [Concomitant]
  9. POTASSIUM 10MEQ [Concomitant]
  10. SENNA PLUS [Concomitant]
     Active Substance: DOCUSATE SODIUM\SENNOSIDES\SENNOSIDES A AND B
  11. PROLIA [Concomitant]
     Active Substance: DENOSUMAB

REACTIONS (1)
  - Intestinal haemorrhage [None]

NARRATIVE: CASE EVENT DATE: 20200320
